FAERS Safety Report 7820545-1 (Version None)
Quarter: 2011Q4

REPORT INFORMATION
  Report Type: 
  Country: None (occurrence: None)
  Receive Date: 20111018
  Receipt Date: 20111012
  Transmission Date: 20120403
  Serious: Yes (Hospitalization, Other)
  Sender: FDA-Public Use
  Company Number: PHHY2011CN90985

PATIENT
  Sex: Female

DRUGS (1)
  1. ZOLEDRONOC ACID [Suspect]
     Indication: OSTEOPOROSIS
     Dosage: 5 MG, UNK
     Route: 042
     Dates: start: 20110901

REACTIONS (5)
  - LIPOMA [None]
  - PYREXIA [None]
  - SKIN BACTERIAL INFECTION [None]
  - HERPES SIMPLEX [None]
  - MYOCARDIAL INFARCTION [None]
